FAERS Safety Report 6220432-9 (Version None)
Quarter: 2009Q2

REPORT INFORMATION
  Report Type: 
  Country: None (occurrence: None)
  Receive Date: 20090610
  Receipt Date: 20090529
  Transmission Date: 20091009
  Serious: Yes (Hospitalization)
  Sender: FDA-Public Use
  Company Number: PH-PFIZER INC-2008157887

PATIENT
  Age: 54 Year

DRUGS (1)
  1. SUNITINIB MALATE [Suspect]
     Indication: BREAST CANCER
     Dosage: 37.5 MG, 1X/DAY
     Dates: start: 20081208, end: 20081218

REACTIONS (2)
  - GASTRIC ULCER [None]
  - OESOPHAGEAL CANDIDIASIS [None]
